FAERS Safety Report 9265889 (Version 2)
Quarter: 2013Q2

REPORT INFORMATION
  Report Type: Spontaneous
  Country: US (occurrence: US)
  Receive Date: 20130501
  Receipt Date: 20130523
  Transmission Date: 20140414
  Serious: Yes (Death, Hospitalization, Other)
  Sender: FDA-Public Use
  Company Number: US-INCYTE CORPORATION-2013IN000821

PATIENT
  Age: 74 Year
  Sex: Male

DRUGS (1)
  1. JAKAFI [Suspect]
     Indication: BLOOD DISORDER
     Dosage: 10 MG, BID
     Route: 048
     Dates: start: 20130226, end: 20130321

REACTIONS (6)
  - Cerebrovascular accident [Fatal]
  - Haemorrhage intracranial [Fatal]
  - Acute myeloid leukaemia [Fatal]
  - Acute myocardial infarction [Unknown]
  - Platelet count decreased [Unknown]
  - Subdural haematoma [Unknown]
